FAERS Safety Report 7380223-2 (Version None)
Quarter: 2011Q1

REPORT INFORMATION
  Report Type: 
  Country: None (occurrence: None)
  Receive Date: 20110329
  Receipt Date: 20101216
  Transmission Date: 20110831
  Serious: No
  Sender: FDA-Public Use
  Company Number: A0900160A

PATIENT
  Age: 60 Year
  Sex: Female

DRUGS (13)
  1. SIMVASTATIN [Concomitant]
  2. OMEPRAZOLE [Concomitant]
  3. REQUIP [Concomitant]
  4. TOPAMAX [Concomitant]
  5. XENICAL [Concomitant]
  6. LAMICTAL [Suspect]
     Indication: DEPRESSION
     Dosage: 25MG PER DAY
     Route: 048
     Dates: start: 20101213
  7. FLEXERIL [Concomitant]
  8. PERCOCET [Concomitant]
  9. LORAZEPAM [Concomitant]
  10. ESTRADIOL [Concomitant]
  11. LEXAPRO [Concomitant]
  12. UNKNOWN MEDICATION [Concomitant]
  13. THYROID SUPPLEMENT [Concomitant]

REACTIONS (2)
  - RASH [None]
  - RASH ERYTHEMATOUS [None]
